FAERS Safety Report 6906147 (Version 5)
Quarter: 2012Q4

REPORT INFORMATION
  Report Type: 
  Country: ES (occurrence: ES)
  Receive Date: 20090210
  Receipt Date: 20121029
  Transmission Date: 20130627
  Serious: Yes (Death, Hospitalization, Other)
  Sender: FDA-Public Use
  Company Number: ES-ROCHE-611528

PATIENT
  Age: 67 Year
  Sex: Female

DRUGS (2)
  1. CAPECITABINE [Suspect]
     Indication: BREAST CANCER METASTATIC
     Dosage: DISCONTINUED.
FREQUENCY: 24 HOURS DURING 7 DAYS.
     Route: 048
     Dates: start: 20081223, end: 20081230
  2. CARBOPLATIN [Concomitant]
     Indication: BREAST CANCER METASTATIC
     Route: 042
     Dates: start: 20081223, end: 20081223

REACTIONS (5)
  - Dihydropyrimidine dehydrogenase deficiency [Fatal]
  - Toxicity to various agents [Fatal]
  - Neutropenia [Unknown]
  - Thrombocytopenia [Unknown]
  - Mucosal inflammation [Unknown]
